FAERS Safety Report 9382773 (Version 3)
Quarter: 2014Q1

REPORT INFORMATION
  Report Type: Spontaneous
  Country: ES (occurrence: ES)
  Receive Date: 20130703
  Receipt Date: 20140123
  Transmission Date: 20141002
  Serious: Yes (Disabling, Other)
  Sender: FDA-Public Use
  Company Number: ES-PFIZER INC-2013193583

PATIENT
  Age: 12 Year
  Sex: Male

DRUGS (2)
  1. CITARABINA [Suspect]
     Dosage: 1 DF, AS NEEDED
     Route: 037
     Dates: start: 20130301, end: 20130301
  2. METHOTREXATE [Suspect]
     Dosage: 1 DF AS NEEDED (STRENGTH 50 MG/2 ML)
     Route: 037
     Dates: start: 20130301, end: 20130301

REACTIONS (2)
  - Radiculopathy [Not Recovered/Not Resolved]
  - Meningitis [Unknown]
